FAERS Safety Report 6405737-0 (Version None)
Quarter: 2009Q4

REPORT INFORMATION
  Report Type: 
  Country: None (occurrence: None)
  Receive Date: 20091016
  Receipt Date: 20091016
  Transmission Date: 20100525
  Serious: Yes (Disabling)
  Sender: FDA-Public Use
  Company Number: None

PATIENT
  Age: 49 Year
  Sex: Female
  Weight: 50.8029 kg

DRUGS (1)
  1. CIPRO [Suspect]

REACTIONS (9)
  - ARTHRALGIA [None]
  - COGNITIVE DISORDER [None]
  - GAIT DISTURBANCE [None]
  - IMPAIRED WORK ABILITY [None]
  - LIGAMENTITIS [None]
  - NEURALGIA [None]
  - PANIC ATTACK [None]
  - TENDON PAIN [None]
  - TENDONITIS [None]
